FAERS Safety Report 9334477 (Version 2)
Quarter: 2013Q4

REPORT INFORMATION
  Report Type: Spontaneous
  Country: US (occurrence: US)
  Receive Date: 20130606
  Receipt Date: 20131008
  Transmission Date: 20140711
  Serious: No
  Sender: FDA-Public Use
  Company Number: US-AMGEN-USASP2013027586

PATIENT
  Age: 68 Year
  Sex: Female
  Weight: 63.5 kg

DRUGS (2)
  1. PROLIA [Suspect]
     Indication: OSTEOPOROSIS
     Dosage: 60 MG, Q6MO
     Route: 058
     Dates: start: 20130415, end: 20130415
  2. CALCIUM [Concomitant]

REACTIONS (7)
  - Muscle twitching [Unknown]
  - Respiratory rate increased [Unknown]
  - Cough [Unknown]
  - Sneezing [Unknown]
  - Malaise [Unknown]
  - Yawning [Unknown]
  - Muscle spasms [Unknown]
